FAERS Safety Report 18241212 (Version 1)
Quarter: 2020Q3

REPORT INFORMATION
  Report Type: Spontaneous
  Country: US (occurrence: US)
  Receive Date: 20200904
  Receipt Date: 20200904
  Transmission Date: 20201103
  Serious: No
  Sender: FDA-Public Use
  Company Number: None

PATIENT
  Sex: Female

DRUGS (1)
  1. HUMAN GROWTH HORMONE [Suspect]
     Active Substance: SOMATROPIN
     Indication: DRUG ABUSE

REACTIONS (8)
  - Swelling [None]
  - Nerve compression [None]
  - Limb asymmetry [None]
  - Product use in unapproved indication [None]
  - Skin tightness [None]
  - Drug abuse [None]
  - Oedema [None]
  - Skin laceration [None]

NARRATIVE: CASE EVENT DATE: 20200903
